FAERS Safety Report 7416787-X (Version None)
Quarter: 2011Q2

REPORT INFORMATION
  Report Type: 
  Country: None (occurrence: None)
  Receive Date: 20110406
  Receipt Date: 20110322
  Transmission Date: 20111010
  Serious: Yes (Hospitalization)
  Sender: FDA-Public Use
  Company Number: DSA_45257_2011

PATIENT
  Age: 76 Year
  Sex: Female

DRUGS (9)
  1. SANDIMMUNE [Concomitant]
  2. METOTRESSATO TEVA [Concomitant]
  3. ENALAPRIL MALEATE [Suspect]
     Indication: CARDIAC DISORDER
     Dosage: (10 MG QD ORAL)
     Route: 048
     Dates: start: 20100101, end: 20110302
  4. PATROL [Concomitant]
  5. REMICADE [Suspect]
     Indication: PSORIATIC ARTHROPATHY
     Dosage: (100 MG/1X INTRAVENOUS (NOT OTHERWISE SPECIFIED))
     Route: 042
     Dates: start: 20110225, end: 20110225
  6. BISOPROLOL FUMARATE [Concomitant]
  7. AMIDARONE [Concomitant]
  8. FOLINA /00024201/ [Concomitant]
  9. LYRICA [Concomitant]

REACTIONS (6)
  - CHEST PAIN [None]
  - ATRIAL FIBRILLATION [None]
  - RHINITIS ALLERGIC [None]
  - ERYTHEMA [None]
  - FACE OEDEMA [None]
  - OEDEMA PERIPHERAL [None]
